FAERS Safety Report 5593405-7 (Version None)
Quarter: 2008Q1

REPORT INFORMATION
  Report Type: 
  Country: None (occurrence: None)
  Receive Date: 20080114
  Receipt Date: 20080107
  Transmission Date: 20080703
  Serious: Yes (Life-Threatening, Hospitalization, Other)
  Sender: FDA-Public Use
  Company Number: 2007SP015545

PATIENT
  Age: 58 Year
  Sex: Female

DRUGS (7)
  1. TEMODAL [Suspect]
     Indication: GLIOBLASTOMA
     Dosage: 120MG;QD;PO
     Route: 048
     Dates: start: 20070712, end: 20070722
  2. ROCEPHIN [Suspect]
     Indication: MENINGITIS
     Dosage: 2 GM; INDRP
     Dates: start: 20070716, end: 20070720
  3. SEROTONE (AZASETRON HYDROCHLORIDE) [Suspect]
     Indication: VOMITING
     Dosage: 10 MG;PO
     Route: 048
     Dates: start: 20070712, end: 20070722
  4. PHENYTOIN [Suspect]
     Indication: CONVULSION
     Dosage: 300 MG;PO
     Route: 048
     Dates: start: 20070621, end: 20070725
  5. GLYBURIDE [Suspect]
     Indication: DIABETES MELLITUS
     Dosage: 2.5 MG;PO
     Route: 048
     Dates: start: 20070622, end: 20070725
  6. FAMOTIDINE [Suspect]
     Indication: GASTRIC ULCER
     Dosage: 40 MG;PO
     Route: 048
     Dates: start: 20070716, end: 20070725
  7. THYRADIN S [Concomitant]

REACTIONS (4)
  - ALANINE AMINOTRANSFERASE INCREASED [None]
  - ASPARTATE AMINOTRANSFERASE INCREASED [None]
  - DRUG INTERACTION [None]
  - HAEMOLYTIC ANAEMIA [None]
